FAERS Safety Report 10279381 (Version 2)
Quarter: 2014Q3

REPORT INFORMATION
  Report Type: Report from Study
  Country: DE (occurrence: DE)
  Receive Date: 20140707
  Receipt Date: 20140714
  Transmission Date: 20150326
  Serious: Yes (Other)
  Sender: FDA-Public Use
  Company Number: PHHY2014DE082581

PATIENT
  Age: 82 Year
  Sex: Male
  Weight: 77 kg

DRUGS (2)
  1. EXELON PATCH [Suspect]
     Active Substance: RIVASTIGMINE
     Indication: DEMENTIA ALZHEIMER^S TYPE
     Dosage: 9.5 MG, QD
     Route: 062
     Dates: start: 20131213
  2. EXELON PATCH [Suspect]
     Active Substance: RIVASTIGMINE
     Dosage: 13.3 MG, QD
     Route: 062
     Dates: start: 20140625

REACTIONS (2)
  - Anaemia [Recovered/Resolved]
  - Myocardial infarction [Recovered/Resolved]

NARRATIVE: CASE EVENT DATE: 20140606
